FAERS Safety Report 22177762 (Version 6)
Quarter: 2023Q4

REPORT INFORMATION
  Report Type: Report from Study
  Country: BR (occurrence: BR)
  Receive Date: 20230405
  Receipt Date: 20231120
  Transmission Date: 20240110
  Serious: Yes (Other)
  Sender: FDA-Public Use
  Company Number: BR-TAKEDA-2023TUS034787

PATIENT
  Age: 59 Year
  Sex: Male
  Weight: 105 kg

DRUGS (11)
  1. ANTI-INHIBITOR COAGULANT COMPLEX [Suspect]
     Active Substance: ANTI-INHIBITOR COAGULANT COMPLEX
     Indication: Factor VIII deficiency
     Dosage: 10000 INTERNATIONAL UNIT, QD
     Route: 042
  2. ANTI-INHIBITOR COAGULANT COMPLEX [Suspect]
     Active Substance: ANTI-INHIBITOR COAGULANT COMPLEX
     Indication: Acquired haemophilia
     Dosage: 10000 INTERNATIONAL UNIT, QOD
     Route: 042
  3. ANTI-INHIBITOR COAGULANT COMPLEX [Suspect]
     Active Substance: ANTI-INHIBITOR COAGULANT COMPLEX
     Dosage: 10000 INTERNATIONAL UNIT
     Route: 042
  4. ANTI-INHIBITOR COAGULANT COMPLEX [Suspect]
     Active Substance: ANTI-INHIBITOR COAGULANT COMPLEX
     Dosage: UNK UNK, QD
     Route: 042
  5. ANTI-INHIBITOR COAGULANT COMPLEX [Suspect]
     Active Substance: ANTI-INHIBITOR COAGULANT COMPLEX
     Dosage: UNK UNK, QOD
     Route: 065
  6. ANTI-INHIBITOR COAGULANT COMPLEX [Suspect]
     Active Substance: ANTI-INHIBITOR COAGULANT COMPLEX
     Dosage: UNK UNK, QOD
     Route: 042
     Dates: start: 20230116
  7. VITAMIN D [Concomitant]
     Active Substance: VITAMIN D NOS
     Dosage: UNK
     Route: 065
  8. IRON [Concomitant]
     Active Substance: IRON
     Dosage: UNK
     Route: 065
  9. DEXAMETHASONE SODIUM PHOSPHATE [Concomitant]
     Active Substance: DEXAMETHASONE SODIUM PHOSPHATE
     Indication: Steroid therapy
     Dosage: UNK
  10. PREDNISONE [Concomitant]
     Active Substance: PREDNISONE
     Dosage: UNK
  11. PROTHROMBIN COMPLEX CONCENTRATE NOS [Concomitant]
     Active Substance: COAGULATION FACTOR IX HUMAN\COAGULATION FACTOR VII HUMAN\COAGULATION FACTOR X HUMAN\PROTHROMBIN
     Dosage: 10000 INTERNATIONAL UNIT, QOD
     Route: 065

REACTIONS (9)
  - Haemorrhage [Not Recovered/Not Resolved]
  - Haematoma [Recovering/Resolving]
  - Ecchymosis [Not Recovered/Not Resolved]
  - Eye haemorrhage [Recovered/Resolved]
  - Ocular hyperaemia [Unknown]
  - Oedema peripheral [Recovered/Resolved]
  - Contusion [Recovered/Resolved]
  - Anti factor VIII antibody increased [Unknown]
  - Swelling [Unknown]

NARRATIVE: CASE EVENT DATE: 20230327
